FAERS Safety Report 10442507 (Version 1)
Quarter: 2014Q3

REPORT INFORMATION
  Report Type: Spontaneous
  Country: JP (occurrence: JP)
  Receive Date: 20140909
  Receipt Date: 20140909
  Transmission Date: 20150326
  Serious: No
  Sender: FDA-Public Use
  Company Number: PHHY2010JP096944

PATIENT
  Sex: Female

DRUGS (2)
  1. TASIGNA [Suspect]
     Active Substance: NILOTINIB
     Dosage: 200MG IN THE MORNING AND 200MG AFTER MEAL
     Dates: start: 20100622
  2. TASIGNA [Suspect]
     Active Substance: NILOTINIB
     Dosage: 200 MG, 2 DIVIDED DOSES
     Dates: start: 20100120

REACTIONS (6)
  - Electrocardiogram QT prolonged [Unknown]
  - Nasopharyngitis [Unknown]
  - Headache [Unknown]
  - Oedema [Recovering/Resolving]
  - Skin disorder [Unknown]
  - Nausea [Unknown]
